FAERS Safety Report 4588898-8 (Version None)
Quarter: 2005Q1

REPORT INFORMATION
  Report Type: 
  Country: None (occurrence: None)
  Receive Date: 20050216
  Receipt Date: 20041123
  Transmission Date: 20050727
  Serious: Yes (Other)
  Sender: FDA-Public Use
  Company Number: 2004241309US

PATIENT
  Age: 79 Year
  Sex: Female
  Weight: 84.8226 kg

DRUGS (9)
  1. BEXTRA [Suspect]
     Indication: HYPERSENSITIVITY
     Dosage: 10 MG, ORAL
     Route: 048
     Dates: start: 20041011, end: 20041015
  2. ATENOLOL [Concomitant]
  3. HYDROCHLOROTHIAZIDE [Concomitant]
  4. AMLODIPINE BESYLATE [Concomitant]
  5. TRAMADOL HCL [Concomitant]
  6. VICODIN [Concomitant]
  7. OMEPRAZOLE [Concomitant]
  8. ZOLPIDEM TARTRATE [Concomitant]
  9. LORAZEPAM [Concomitant]

REACTIONS (4)
  - ERYTHEMA [None]
  - GENERALISED ERYTHEMA [None]
  - PRURITUS [None]
  - SKIN REACTION [None]
